FAERS Safety Report 14220984 (Version 1)
Quarter: 2017Q4

REPORT INFORMATION
  Report Type: Spontaneous
  Country: IT (occurrence: IT)
  Receive Date: 20171124
  Receipt Date: 20171124
  Transmission Date: 20180321
  Serious: Yes (Hospitalization, Other)
  Sender: FDA-Public Use
  Company Number: IT-PFIZER INC-2017500608

PATIENT
  Age: 60 Year
  Sex: Male
  Weight: 115 kg

DRUGS (3)
  1. DOCETAXEL. [Suspect]
     Active Substance: DOCETAXEL
     Indication: PROSTATE CANCER METASTATIC
     Dosage: CUMULATIVE DOSE: 525 MG/M2
     Dates: start: 201110
  2. PREDNISONE. [Suspect]
     Active Substance: PREDNISONE
     Dosage: 12.5 MG, DAILY
     Dates: start: 201104
  3. CABAZITAXEL [Suspect]
     Active Substance: CABAZITAXEL
     Indication: PROSTATE CANCER
     Dosage: UNK
     Dates: start: 201204

REACTIONS (3)
  - Fluid retention [Recovering/Resolving]
  - Idiopathic intracranial hypertension [Recovering/Resolving]
  - Weight increased [Recovering/Resolving]
